FAERS Safety Report 4665684-1 (Version None)
Quarter: 2005Q2

REPORT INFORMATION
  Report Type: 
  Country: None (occurrence: None)
  Receive Date: 20050517
  Receipt Date: 20050517
  Transmission Date: 20051028
  Serious: No
  Sender: FDA-Public Use
  Company Number: None

PATIENT
  Sex: Female
  Weight: 115 kg

DRUGS (2)
  1. CISPLATIN [Suspect]
     Indication: NEOPLASM MALIGNANT
     Dosage: 100 MG/M2 ON DAYS 1 AND 22
     Dates: start: 20050330
  2. RADIATION [Suspect]
     Dosage: 72 GY/42 FX FOR 6 WEEKS

REACTIONS (7)
  - FLUID INTAKE REDUCED [None]
  - ORAL INTAKE REDUCED [None]
  - PANCYTOPENIA [None]
  - PNEUMONIA ASPIRATION [None]
  - PNEUMONIA STAPHYLOCOCCAL [None]
  - RADIATION PNEUMONITIS [None]
  - RENAL FAILURE ACUTE [None]
